FAERS Safety Report 5114896-1 (Version None)
Quarter: 2006Q3

REPORT INFORMATION
  Report Type: 
  Country: None (occurrence: None)
  Receive Date: 20060921
  Receipt Date: 20060908
  Transmission Date: 20061208
  Serious: Yes (Other)
  Sender: FDA-Public Use
  Company Number: 2006110685

PATIENT
  Age: 75 Year
  Sex: Male

DRUGS (3)
  1. DETRUSITOL SR (TOLTERODINE) [Suspect]
     Dosage: 4 MG, ORAL
     Route: 048
     Dates: start: 20060801, end: 20060801
  2. ALOSENN (ACHILLEA, RUBIA ROOT TINCTURE, SENNA FRUIT, SENNA LEAF, TARAX [Concomitant]
  3. JUVELA (TOCOPHEROL) [Concomitant]

REACTIONS (2)
  - DELUSION [None]
  - INSOMNIA [None]
